FAERS Safety Report 20472836 (Version 1)
Quarter: 2022Q1

REPORT INFORMATION
  Report Type: Spontaneous
  Country: RU (occurrence: RU)
  Receive Date: 20220215
  Receipt Date: 20220215
  Transmission Date: 20220423
  Serious: Yes (Hospitalization, Other)
  Sender: FDA-Public Use
  Company Number: None

PATIENT
  Age: 2 Year
  Sex: Female
  Weight: 15 kg

DRUGS (4)
  1. ACTRAPID [Suspect]
     Active Substance: INSULIN HUMAN
     Indication: Gastroenteritis
     Dosage: UNK
     Route: 065
  2. POTASSIUM CHLORIDE [Suspect]
     Active Substance: POTASSIUM CHLORIDE
     Indication: Gastroenteritis
     Dosage: UNK
     Route: 042
     Dates: start: 20220201, end: 20220201
  3. MAGNESIUM SULFATE [Suspect]
     Active Substance: MAGNESIUM SULFATE
     Indication: Gastroenteritis
     Dosage: UNK
     Route: 042
  4. DEXTROSE [Suspect]
     Active Substance: DEXTROSE
     Indication: Gastroenteritis
     Dosage: UNK
     Route: 042
     Dates: start: 20220201, end: 20220201

REACTIONS (2)
  - Urticaria [Recovered/Resolved]
  - Off label use [Unknown]

NARRATIVE: CASE EVENT DATE: 20220201
